FAERS Safety Report 4502665-2 (Version None)
Quarter: 2004Q4

REPORT INFORMATION
  Report Type: 
  Country: None (occurrence: None)
  Receive Date: 20041110
  Receipt Date: 20041104
  Transmission Date: 20050328
  Serious: Yes (Other)
  Sender: FDA-Public Use
  Company Number: ERD2003A00005

PATIENT
  Age: 61 Year
  Sex: Male

DRUGS (8)
  1. PIOGLITAZONE HCL [Suspect]
     Indication: DIABETES MELLITUS NON-INSULIN-DEPENDENT
     Dosage: 45 MG, ORAL
     Route: 048
     Dates: start: 20020213
  2. METFORMIN HCL [Suspect]
     Indication: DIABETES MELLITUS
     Dates: start: 19990101
  3. GLIMEPIRIDE [Concomitant]
  4. BISOPROLOL FUMARATE [Concomitant]
  5. PERINDOPRIL (PERINDOPRIL) [Concomitant]
  6. ASPIRIN [Concomitant]
  7. THYROXIN (LEVOTHYROXINE SODIUM) [Concomitant]
  8. DIGOXIN [Concomitant]

REACTIONS (5)
  - ASCITES [None]
  - BILIARY TRACT DISORDER [None]
  - HEPATIC CIRRHOSIS [None]
  - HEPATOCELLULAR DAMAGE [None]
  - WEIGHT DECREASED [None]
